FAERS Safety Report 10078356 (Version 17)
Quarter: 2016Q4

REPORT INFORMATION
  Report Type: Report from Study
  Country: CA (occurrence: CA)
  Receive Date: 20140415
  Receipt Date: 20161111
  Transmission Date: 20170206
  Serious: Yes (Other)
  Sender: FDA-Public Use
  Company Number: CA-ROCHE-1118674

PATIENT
  Age: 67 Year
  Sex: Female
  Weight: 79 kg

DRUGS (14)
  1. ACTEMRA [Suspect]
     Active Substance: TOCILIZUMAB
     Route: 042
     Dates: start: 20131113
  2. ACTEMRA [Suspect]
     Active Substance: TOCILIZUMAB
     Route: 042
     Dates: start: 20130829
  3. ACTEMRA [Suspect]
     Active Substance: TOCILIZUMAB
     Route: 042
     Dates: start: 20131121, end: 20161020
  4. SYNTHROID [Concomitant]
     Active Substance: LEVOTHYROXINE SODIUM
  5. CARBOCAL [Concomitant]
     Active Substance: CALCIUM CARBONATE
  6. CLONAZEPAM. [Concomitant]
     Active Substance: CLONAZEPAM
  7. NEXIUM [Concomitant]
     Active Substance: ESOMEPRAZOLE MAGNESIUM
  8. PREDNISONE. [Concomitant]
     Active Substance: PREDNISONE
     Route: 065
  9. FUROSEMIDE. [Concomitant]
     Active Substance: FUROSEMIDE
  10. BISOPROLOL [Concomitant]
     Active Substance: BISOPROLOL
  11. ACTEMRA [Suspect]
     Active Substance: TOCILIZUMAB
     Indication: RHEUMATOID ARTHRITIS
     Route: 042
     Dates: start: 20120525
  12. ACETAMINOPHEN. [Concomitant]
     Active Substance: ACETAMINOPHEN
  13. APO-RANITIDINE [Concomitant]
     Active Substance: RANITIDINE
  14. METHOTREXATE. [Suspect]
     Active Substance: METHOTREXATE
     Indication: PRODUCT USED FOR UNKNOWN INDICATION
     Route: 065

REACTIONS (26)
  - Peripheral swelling [Unknown]
  - Muscle spasms [Unknown]
  - Oesophageal infection [Not Recovered/Not Resolved]
  - Oxygen saturation decreased [Unknown]
  - Pain in extremity [Not Recovered/Not Resolved]
  - Mouth ulceration [Recovered/Resolved]
  - Tongue disorder [Unknown]
  - Inflammation [Not Recovered/Not Resolved]
  - Gingival pain [Unknown]
  - Abdominal pain [Unknown]
  - Arthropod bite [Not Recovered/Not Resolved]
  - Drug ineffective [Unknown]
  - Blood pressure diastolic abnormal [Unknown]
  - Nausea [Unknown]
  - Gingival swelling [Unknown]
  - Infected bite [Not Recovered/Not Resolved]
  - Fungal pharyngitis [Not Recovered/Not Resolved]
  - Arthropathy [Not Recovered/Not Resolved]
  - Blood pressure diastolic decreased [Unknown]
  - Nasopharyngitis [Not Recovered/Not Resolved]
  - Back pain [Not Recovered/Not Resolved]
  - Blood pressure systolic increased [Unknown]
  - Headache [Unknown]
  - Weight increased [Unknown]
  - Headache [Unknown]
  - Blood pressure increased [Unknown]

NARRATIVE: CASE EVENT DATE: 20120721
